FAERS Safety Report 13916131 (Version 1)
Quarter: 2017Q3

REPORT INFORMATION
  Report Type: Spontaneous
  Country: IT (occurrence: IT)
  Receive Date: 20170829
  Receipt Date: 20170829
  Transmission Date: 20171127
  Serious: Yes (Hospitalization)
  Sender: FDA-Public Use
  Company Number: IT-BAYER-2017-158908

PATIENT
  Age: 97 Year
  Sex: Female

DRUGS (4)
  1. SODIUM BICARBONATE. [Concomitant]
     Active Substance: SODIUM BICARBONATE
     Dosage: 500 MG, QD
     Route: 048
  2. LEVOPRAID [Concomitant]
     Active Substance: SULPIRIDE
     Dosage: 10 GTT, QD
     Route: 048
  3. CARDIOASPIRIN 100 MG [Suspect]
     Active Substance: ASPIRIN
     Indication: PROPHYLAXIS
     Dosage: 100 MG, QD
     Route: 048
  4. LASIX [Concomitant]
     Active Substance: FUROSEMIDE
     Dosage: 25 MG, QD
     Route: 048

REACTIONS (4)
  - Monoplegia [Unknown]
  - Aphasia [Unknown]
  - Cerebral haemorrhage [Unknown]
  - Sopor [Unknown]

NARRATIVE: CASE EVENT DATE: 20170807
